FAERS Safety Report 22884368 (Version 3)
Quarter: 2023Q4

REPORT INFORMATION
  Report Type: Spontaneous
  Country: US (occurrence: US)
  Receive Date: 20230830
  Receipt Date: 20231205
  Transmission Date: 20240109
  Serious: No
  Sender: FDA-Public Use
  Company Number: US-PFIZER INC-PV202300128708

PATIENT
  Age: 78 Year

DRUGS (1)
  1. ESTRING [Suspect]
     Active Substance: ESTRADIOL
     Dosage: UNK

REACTIONS (3)
  - Urinary tract infection [Not Recovered/Not Resolved]
  - Discomfort [Unknown]
  - Dysphonia [Unknown]

NARRATIVE: CASE EVENT DATE: 20231127
